FAERS Safety Report 23270711 (Version 1)
Quarter: 2023Q4

REPORT INFORMATION
  Report Type: Spontaneous
  Country: EG (occurrence: EG)
  Receive Date: 20231207
  Receipt Date: 20231207
  Transmission Date: 20240110
  Serious: Yes (Death, Other)
  Sender: FDA-Public Use
  Company Number: EG-SA-SAC20231206000869

PATIENT
  Age: 38 Year
  Sex: Female

DRUGS (8)
  1. ENOXAPARIN SODIUM [Suspect]
     Active Substance: ENOXAPARIN SODIUM
     Dosage: 40 MG, QD
     Route: 058
     Dates: start: 20231018
  2. SEDONASE [Concomitant]
     Dosage: 500000 IU
     Dates: start: 20231023, end: 20231023
  3. SEDONASE [Concomitant]
     Dosage: 100000 IU, MAINTENANCE DOSE FOR 48 HOURS
  4. CONTROLOC [Concomitant]
     Active Substance: PANTOPRAZOLE SODIUM
     Dosage: UNK
  5. CETAL [VINCAMINE] [Concomitant]
     Dosage: UNK
  6. TORSEMIDE [Concomitant]
     Active Substance: TORSEMIDE
     Dosage: UNK
  7. FLAGYL [Concomitant]
     Active Substance: METRONIDAZOLE\METRONIDAZOLE HYDROCHLORIDE
     Dosage: UNK
  8. CEFTRIAXONE [Concomitant]
     Active Substance: CEFTRIAXONE\CEFTRIAXONE SODIUM
     Dosage: UNK

REACTIONS (5)
  - Cardiac arrest [Fatal]
  - Melaena [Fatal]
  - Incorrect dose administered [Fatal]
  - Contraindicated product prescribed [Fatal]
  - Haemorrhage [Fatal]

NARRATIVE: CASE EVENT DATE: 20231024
